FAERS Safety Report 16638304 (Version 7)
Quarter: 2019Q4

REPORT INFORMATION
  Report Type: Report from Study
  Country: US (occurrence: US)
  Receive Date: 20190726
  Receipt Date: 20191107
  Transmission Date: 20200122
  Serious: Yes (Hospitalization, Other)
  Sender: FDA-Public Use
  Company Number: US-JNJFOC-20190601429

PATIENT
  Sex: Female

DRUGS (22)
  1. IMBRUVICA [Suspect]
     Active Substance: IBRUTINIB
     Indication: CHRONIC LYMPHOCYTIC LEUKAEMIA
     Dosage: 280 MG, QD
     Route: 048
     Dates: start: 20190223, end: 20190614
  2. IMBRUVICA [Suspect]
     Active Substance: IBRUTINIB
     Dosage: 140 MG, QD
     Route: 048
     Dates: start: 20190615, end: 20190816
  3. IMBRUVICA [Suspect]
     Active Substance: IBRUTINIB
     Dosage: 70 MG, QD
     Route: 048
     Dates: start: 20190818
  4. FUROSEMIDE. [Concomitant]
     Active Substance: FUROSEMIDE
  5. LEVOTHYROXINE. [Concomitant]
     Active Substance: LEVOTHYROXINE
  6. IMBRUVICA [Suspect]
     Active Substance: IBRUTINIB
     Indication: LYMPHOCYTIC LEUKAEMIA
     Dosage: 140 MG, QD
     Route: 048
     Dates: start: 20190222
  7. SERTRALINE HCL [Concomitant]
     Active Substance: SERTRALINE HYDROCHLORIDE
  8. BALSALAZIDE [Concomitant]
     Active Substance: BALSALAZIDE
  9. INTEGRA F [Concomitant]
     Active Substance: ASCORBIC ACID\FERROUS ASPARTO GLYCINATE\FERROUS FUMARATE\FOLIC ACID\NIACIN
  10. SIMVASTATIN. [Concomitant]
     Active Substance: SIMVASTATIN
  11. TOPROL XL [Concomitant]
     Active Substance: METOPROLOL SUCCINATE
  12. PRILOSEC [Concomitant]
     Active Substance: OMEPRAZOLE MAGNESIUM
  13. TYLENOL ARTHRITIS PAIN [Concomitant]
     Active Substance: ACETAMINOPHEN
  14. INTEGRA [Concomitant]
     Active Substance: DIETARY SUPPLEMENT
  15. METAXALONE. [Concomitant]
     Active Substance: METAXALONE
  16. CEPHALEXIN                         /00145501/ [Concomitant]
     Active Substance: CEPHALEXIN
  17. IMBRUVICA [Suspect]
     Active Substance: IBRUTINIB
     Dosage: 140 MG, QD
     Route: 048
     Dates: start: 20180817
  18. GABAPENTIN. [Concomitant]
     Active Substance: GABAPENTIN
  19. KEFLEX [Concomitant]
     Active Substance: CEPHALEXIN
  20. TROSPIUM CHLORIDE. [Concomitant]
     Active Substance: TROSPIUM CHLORIDE
  21. PREMARIN [Concomitant]
     Active Substance: ESTROGENS, CONJUGATED
  22. CRANBERRY                          /01512301/ [Concomitant]
     Active Substance: CRANBERRY

REACTIONS (13)
  - Arthralgia [Unknown]
  - Pain in extremity [Unknown]
  - White blood cell count decreased [Unknown]
  - Electrocardiogram abnormal [Unknown]
  - Cognitive disorder [Unknown]
  - Spinal stenosis [Unknown]
  - Medical device site infection [Unknown]
  - Urinary tract infection [Not Recovered/Not Resolved]
  - Knee arthroplasty [Unknown]
  - Ejection fraction decreased [Unknown]
  - Urinary incontinence [Not Recovered/Not Resolved]
  - Psoriasis [Unknown]
  - Dyspnoea [Unknown]
